FAERS Safety Report 6735524-5 (Version None)
Quarter: 2010Q2

REPORT INFORMATION
  Report Type: 
  Country: None (occurrence: None)
  Receive Date: 20100521
  Receipt Date: 20100517
  Transmission Date: 20101027
  Serious: Yes (Death)
  Sender: FDA-Public Use
  Company Number: FR-ASTRAZENECA-2010SE22357

PATIENT
  Age: 73 Year
  Sex: Female

DRUGS (6)
  1. TENORMIN [Interacting]
     Indication: ATRIAL FIBRILLATION
     Route: 048
     Dates: start: 20100220, end: 20100314
  2. CIPRALAN [Interacting]
     Indication: ATRIAL FIBRILLATION
     Route: 048
     Dates: start: 20100308, end: 20100314
  3. CORDARONE [Suspect]
     Indication: ATRIAL FIBRILLATION
     Route: 048
     Dates: end: 20100308
  4. UNSPECIFIED ANTIVITAMIN K DRUG [Concomitant]
     Route: 048
  5. COVERSYL [Concomitant]
     Route: 048
  6. OMACOR [Concomitant]
     Route: 058

REACTIONS (2)
  - CARDIO-RESPIRATORY ARREST [None]
  - DRUG INTERACTION [None]
